FAERS Safety Report 16910210 (Version 2)
Quarter: 2019Q4

REPORT INFORMATION
  Report Type: Spontaneous
  Country: FR (occurrence: FR)
  Receive Date: 20191011
  Receipt Date: 20191220
  Transmission Date: 20200122
  Serious: Yes (Death)
  Sender: FDA-Public Use
  Company Number: FR-PFIZER INC-2019435789

PATIENT
  Age: 69 Year
  Sex: Female
  Weight: 103 kg

DRUGS (17)
  1. ZAMUDOL [Concomitant]
     Active Substance: TRAMADOL HYDROCHLORIDE
     Indication: PAIN
     Dosage: 150 MG, 1X/DAY AS NEEDED
  2. CONTRAMAL [Concomitant]
     Active Substance: TRAMADOL HYDROCHLORIDE
     Indication: PAIN
     Dosage: 1 DF, 1X/DAY IF NEEDED
     Route: 065
  3. LEVOTHYROX [Concomitant]
     Active Substance: LEVOTHYROXINE
     Dosage: 100 UG, CYCLIC EVERY MONDAYS, TUESDAYS, THURSDAYS, FRIDAYS, AND SATURDAYS
     Route: 048
  4. METHOTREXATE SODIUM. [Suspect]
     Active Substance: METHOTREXATE SODIUM
     Indication: RHEUMATOID ARTHRITIS
     Dosage: UNK
     Route: 048
  5. DOLIPRANE [Concomitant]
     Active Substance: ACETAMINOPHEN
     Dosage: 4 DF, 1X/DAY AS NEEDED
     Route: 048
  6. CRESTOR [Concomitant]
     Active Substance: ROSUVASTATIN CALCIUM
     Dosage: 5 MG, ALTERNATE DAY
     Route: 048
  7. ORENCIA [Suspect]
     Active Substance: ABATACEPT
     Indication: RHEUMATOID ARTHRITIS
     Dosage: UNK
     Route: 041
     Dates: start: 2014, end: 201606
  8. STILNOX [Concomitant]
     Active Substance: ZOLPIDEM TARTRATE
     Dosage: 10 MG, 1X/DAY
  9. GLICLAZIDE MYLAN [Concomitant]
     Active Substance: GLICLAZIDE
     Dosage: 2 DF, ALTERNATE DAY
  10. ALPRAZOLAM MYLAN [Concomitant]
     Active Substance: ALPRAZOLAM
     Dosage: 1 DF, 1X/DAY AS NEEDED
  11. LEVOTHYROX [Concomitant]
     Active Substance: LEVOTHYROXINE
     Dosage: 125 UG, CYCLIC EVERY WEDNESDAYS AND SUNDAYS
     Route: 048
  12. HUMIRA [Suspect]
     Active Substance: ADALIMUMAB
     Indication: RHEUMATOID ARTHRITIS
     Dosage: UNK
     Route: 041
     Dates: start: 2013, end: 2014
  13. PRIMPERAN [Concomitant]
     Active Substance: METOCLOPRAMIDE HYDROCHLORIDE
     Dosage: 30 MG, 1X/DAY
     Route: 065
  14. OMEPRAZOLE ARROW [OMEPRAZOLE] [Concomitant]
     Dosage: 20 MG, 1X/DAY
     Route: 048
  15. ROACTEMRA [Suspect]
     Active Substance: TOCILIZUMAB
     Indication: RHEUMATOID ARTHRITIS
     Dosage: UNK
     Route: 041
     Dates: start: 2017
  16. ARAVA [Suspect]
     Active Substance: LEFLUNOMIDE
     Indication: RHEUMATOID ARTHRITIS
     Dosage: UNK
     Route: 048
     Dates: start: 2009, end: 2013
  17. ZYMAD [Concomitant]
     Active Substance: CHOLECALCIFEROL
     Dosage: 1 DF, 2X/WEEK
     Route: 048

REACTIONS (1)
  - Malignant melanoma [Fatal]

NARRATIVE: CASE EVENT DATE: 20190822
